FAERS Safety Report 7591858-6 (Version None)
Quarter: 2011Q3

REPORT INFORMATION
  Report Type: 
  Country: None (occurrence: None)
  Receive Date: 20110706
  Receipt Date: 20110620
  Transmission Date: 20111222
  Serious: Yes (Hospitalization)
  Sender: FDA-Public Use
  Company Number: ES-TYCO HEALTHCARE/MALLINCKRODT-T201101299

PATIENT

DRUGS (1)
  1. EXALGO [Suspect]
     Indication: PAIN
     Dosage: 4 MG, QD
     Route: 048

REACTIONS (1)
  - MULTIPLE INJURIES [None]
